FAERS Safety Report 6142652-4 (Version None)
Quarter: 2009Q2

REPORT INFORMATION
  Report Type: 
  Country: None (occurrence: None)
  Receive Date: 20090403
  Receipt Date: 20090326
  Transmission Date: 20091009
  Serious: Yes (Other)
  Sender: FDA-Public Use
  Company Number: US-BAYER-200916926NA

PATIENT
  Age: 42 Year
  Sex: Female

DRUGS (1)
  1. YAZ [Suspect]
     Indication: DRUG USE FOR UNKNOWN INDICATION
     Dosage: TOTAL DAILY DOSE: 1 DF
     Route: 048

REACTIONS (3)
  - BACK PAIN [None]
  - ELECTROCARDIOGRAM ABNORMAL [None]
  - PULMONARY EMBOLISM [None]
